FAERS Safety Report 20435148 (Version 1)
Quarter: 2022Q1

REPORT INFORMATION
  Report Type: Other
  Country: None (occurrence: US)
  Receive Date: 20220206
  Receipt Date: 20220206
  Transmission Date: 20220423
  Serious: Yes (Death)
  Sender: FDA-Public Use
  Company Number: US-Intellipharmaceutics Corp.-2124654

PATIENT
  Age: 74 Year
  Sex: Female

DRUGS (3)
  1. QUETIAPINE FUMARATE [Suspect]
     Active Substance: QUETIAPINE FUMARATE
     Indication: Product used for unknown indication
     Route: 051
  2. PREGABALIN [Suspect]
     Active Substance: PREGABALIN
     Route: 051
  3. INSULIN NOS [Suspect]
     Active Substance: INSULIN NOS
     Route: 051

REACTIONS (2)
  - Death [Fatal]
  - Incorrect route of product administration [Fatal]

NARRATIVE: CASE EVENT DATE: 20200101
